FAERS Safety Report 24009353 (Version 1)
Quarter: 2024Q2

REPORT INFORMATION
  Report Type: Spontaneous
  Country: CH (occurrence: CH)
  Receive Date: 20240625
  Receipt Date: 20240625
  Transmission Date: 20240716
  Serious: Yes (Hospitalization, Other)
  Sender: FDA-Public Use
  Company Number: CH-GLAXOSMITHKLINE-CH2024EME078317

PATIENT

DRUGS (2)
  1. JEMPERLI [Suspect]
     Active Substance: DOSTARLIMAB-GXLY
     Indication: Endometrial cancer
     Dosage: UNK
     Dates: start: 202308
  2. CARBOPLATIN\PACLITAXEL [Suspect]
     Active Substance: CARBOPLATIN\PACLITAXEL
     Indication: Endometrial cancer
     Dosage: UNK
     Dates: start: 202308

REACTIONS (5)
  - Anaemia [Unknown]
  - Vaginal haemorrhage [Unknown]
  - Vaginal disorder [Unknown]
  - Neutropenia [Unknown]
  - Tissue infiltration [Unknown]
